FAERS Safety Report 5764893-8 (Version None)
Quarter: 2008Q2

REPORT INFORMATION
  Report Type: 
  Country: None (occurrence: None)
  Receive Date: 20080611
  Receipt Date: 20070604
  Transmission Date: 20081010
  Serious: Yes (Hospitalization)
  Sender: FDA-Public Use
  Company Number: A0720727A

PATIENT
  Age: 55 Year
  Sex: Female

DRUGS (8)
  1. NIZATIDINE [Suspect]
     Indication: GASTRITIS PROPHYLAXIS
     Dosage: 300MG PER DAY
     Route: 048
  2. PREDNISOLONE [Concomitant]
     Indication: PALLIATIVE CARE
     Dosage: 30MG PER DAY
     Route: 048
  3. TICLOPIDINE HYDROCHLORIDE [Concomitant]
     Indication: DRUG USE FOR UNKNOWN INDICATION
     Dosage: 200MG PER DAY
  4. TEPRENONE [Concomitant]
     Indication: DRUG USE FOR UNKNOWN INDICATION
     Dosage: 150MG PER DAY
  5. NINJIN-TO [Concomitant]
     Indication: DRUG USE FOR UNKNOWN INDICATION
  6. AGARICUS [Concomitant]
     Indication: DRUG USE FOR UNKNOWN INDICATION
  7. FUCOIDAN [Concomitant]
     Indication: DRUG USE FOR UNKNOWN INDICATION
  8. ASPIRIN [Concomitant]

REACTIONS (2)
  - PYREXIA [None]
  - RASH MACULO-PAPULAR [None]
